FAERS Safety Report 4512344-3 (Version None)
Quarter: 2004Q4

REPORT INFORMATION
  Report Type: 
  Country: None (occurrence: None)
  Receive Date: 20041129
  Receipt Date: 20041115
  Transmission Date: 20050328
  Serious: Yes (Life-Threatening)
  Sender: FDA-Public Use
  Company Number: NZ-GLAXOSMITHKLINE-B0358170A

PATIENT
  Sex: Female

DRUGS (1)
  1. AROPAX [Suspect]
     Indication: ILL-DEFINED DISORDER
     Route: 065

REACTIONS (4)
  - BEDRIDDEN [None]
  - DISSOCIATIVE DISORDER [None]
  - HYPERSOMNIA [None]
  - SUICIDE ATTEMPT [None]
